FAERS Safety Report 23406027 (Version 2)
Quarter: 2024Q1

REPORT INFORMATION
  Report Type: Report from Study
  Country: US (occurrence: US)
  Receive Date: 20240116
  Receipt Date: 20240221
  Transmission Date: 20240409
  Serious: Yes (Other)
  Sender: FDA-Public Use
  Company Number: US-002147023-NVSC2024US005067

PATIENT
  Sex: Female

DRUGS (2)
  1. ENTRESTO [Suspect]
     Active Substance: SACUBITRIL\VALSARTAN
     Indication: Product used for unknown indication
     Dosage: BID
     Route: 065
     Dates: start: 202309
  2. ENTRESTO [Suspect]
     Active Substance: SACUBITRIL\VALSARTAN
     Dosage: INCREASED DOSE
     Route: 065

REACTIONS (3)
  - Cardiac dysfunction [Recovering/Resolving]
  - Insomnia [Unknown]
  - Product dose omission issue [Unknown]
